FAERS Safety Report 8349794-3 (Version None)
Quarter: 2012Q2

REPORT INFORMATION
  Report Type: 
  Country: None (occurrence: None)
  Receive Date: 20120510
  Receipt Date: 20120430
  Transmission Date: 20120825
  Serious: Yes (Other)
  Sender: FDA-Public Use
  Company Number: CO-JNJFOC-20120501533

PATIENT
  Age: 61 Year
  Sex: Female

DRUGS (4)
  1. REMICADE [Suspect]
     Indication: RHEUMATOID ARTHRITIS
     Route: 042
     Dates: start: 20110203
  2. ACYCLOVIR [Concomitant]
     Route: 048
  3. ACETAMINOPHEN [Concomitant]
     Route: 048
  4. THIAMINE HCL [Concomitant]
     Route: 042

REACTIONS (3)
  - HERPES VIRUS INFECTION [None]
  - FEELING HOT [None]
  - BURNING SENSATION [None]
